FAERS Safety Report 7451866-2 (Version None)
Quarter: 2011Q2

REPORT INFORMATION
  Report Type: 
  Country: None (occurrence: None)
  Receive Date: 20110502
  Receipt Date: 20100428
  Transmission Date: 20111010
  Serious: No
  Sender: FDA-Public Use
  Company Number: US-ASTRAZENECA-2010SE19186

PATIENT
  Sex: Female

DRUGS (2)
  1. NEXIUM [Suspect]
     Dosage: 1 CAPSULE PER DAY
     Route: 048
  2. NEXIUM [Suspect]
     Dosage: 2 CAPSULES PER DAY
     Route: 048

REACTIONS (2)
  - DRUG DOSE OMISSION [None]
  - VOMITING [None]
